FAERS Safety Report 6886919-0 (Version None)
Quarter: 2010Q3

REPORT INFORMATION
  Report Type: 
  Country: None (occurrence: None)
  Receive Date: 20100727
  Receipt Date: 20100719
  Transmission Date: 20110219
  Serious: Yes (Hospitalization, Other)
  Sender: FDA-Public Use
  Company Number: 2010SP039927

PATIENT
  Age: 50 Year
  Sex: Female

DRUGS (1)
  1. HEPARIN SODIUM [Suspect]
     Indication: THROMBOSIS
     Dosage: 300 IU; IV, 200 IU;IV
     Route: 042

REACTIONS (8)
  - CAROTID ARTERY OCCLUSION [None]
  - CAROTID ARTERY THROMBOSIS [None]
  - CEREBRAL INFARCTION [None]
  - COLLATERAL CIRCULATION [None]
  - HEPARIN-INDUCED THROMBOCYTOPENIA [None]
  - NEUROLOGICAL DECOMPENSATION [None]
  - SUPERIOR SAGITTAL SINUS THROMBOSIS [None]
  - WHITE CLOT SYNDROME [None]
